FAERS Safety Report 24095900 (Version 1)
Quarter: 2024Q3

REPORT INFORMATION
  Report Type: Spontaneous
  Country: US (occurrence: None)
  Receive Date: 20240715
  Receipt Date: 20240715
  Transmission Date: 20241017
  Serious: Yes (Hospitalization)
  Sender: Public
  Company Number: None

PATIENT
  Age: 58 Year
  Sex: Male

DRUGS (6)
  1. STELARA [Suspect]
     Active Substance: USTEKINUMAB
     Indication: Crohn^s disease
     Dosage: OTHER FREQUENCY : EVERY6WEEKS;?
     Route: 042
     Dates: start: 202108
  2. PREDNISONE [Concomitant]
  3. DICYCLOMINE [Concomitant]
  4. HYOSCYAMINE [Concomitant]
  5. SODIUM BICARBONATE [Concomitant]
  6. LEVAQUIN [Concomitant]

REACTIONS (2)
  - Crohn^s disease [None]
  - Drug ineffective [None]

NARRATIVE: CASE EVENT DATE: 20240703
